FAERS Safety Report 6140273-0 (Version None)
Quarter: 2009Q1

REPORT INFORMATION
  Report Type: 
  Country: None (occurrence: None)
  Receive Date: 20090324
  Receipt Date: 20090304
  Transmission Date: 20090719
  Serious: Yes (Hospitalization)
  Sender: FDA-Public Use
  Company Number: 216957

PATIENT
  Age: 32 Year
  Sex: Female

DRUGS (35)
  1. METHYLPREDNISOLONE [Suspect]
     Indication: OFF LABEL USE
     Dosage: BETWEEN 100MG-500MG EACH CYCLE, CYCLICAL, INTRAVENOUS; (CYCLICAL) INTRAVENOUS; INTRAVENOUS
     Route: 042
     Dates: start: 20030729, end: 20030812
  2. METHYLPREDNISOLONE [Suspect]
     Indication: SYSTEMIC LUPUS ERYTHEMATOSUS
     Dosage: BETWEEN 100MG-500MG EACH CYCLE, CYCLICAL, INTRAVENOUS; (CYCLICAL) INTRAVENOUS; INTRAVENOUS
     Route: 042
     Dates: start: 20030729, end: 20030812
  3. METHYLPREDNISOLONE [Suspect]
     Indication: OFF LABEL USE
     Dosage: BETWEEN 100MG-500MG EACH CYCLE, CYCLICAL, INTRAVENOUS; (CYCLICAL) INTRAVENOUS; INTRAVENOUS
     Route: 042
     Dates: start: 20040624, end: 20040718
  4. METHYLPREDNISOLONE [Suspect]
     Indication: SYSTEMIC LUPUS ERYTHEMATOSUS
     Dosage: BETWEEN 100MG-500MG EACH CYCLE, CYCLICAL, INTRAVENOUS; (CYCLICAL) INTRAVENOUS; INTRAVENOUS
     Route: 042
     Dates: start: 20040624, end: 20040718
  5. METHYLPREDNISOLONE [Suspect]
     Indication: OFF LABEL USE
     Dosage: BETWEEN 100MG-500MG EACH CYCLE, CYCLICAL, INTRAVENOUS; (CYCLICAL) INTRAVENOUS; INTRAVENOUS
     Route: 042
     Dates: start: 20050412, end: 20050426
  6. METHYLPREDNISOLONE [Suspect]
     Indication: SYSTEMIC LUPUS ERYTHEMATOSUS
     Dosage: BETWEEN 100MG-500MG EACH CYCLE, CYCLICAL, INTRAVENOUS; (CYCLICAL) INTRAVENOUS; INTRAVENOUS
     Route: 042
     Dates: start: 20050412, end: 20050426
  7. METHYLPREDNISOLONE [Suspect]
     Indication: OFF LABEL USE
     Dosage: BETWEEN 100MG-500MG EACH CYCLE, CYCLICAL, INTRAVENOUS; (CYCLICAL) INTRAVENOUS; INTRAVENOUS
     Route: 042
     Dates: start: 20051010, end: 20051026
  8. METHYLPREDNISOLONE [Suspect]
     Indication: SYSTEMIC LUPUS ERYTHEMATOSUS
     Dosage: BETWEEN 100MG-500MG EACH CYCLE, CYCLICAL, INTRAVENOUS; (CYCLICAL) INTRAVENOUS; INTRAVENOUS
     Route: 042
     Dates: start: 20051010, end: 20051026
  9. METHYLPREDNISOLONE [Suspect]
     Indication: OFF LABEL USE
     Dosage: BETWEEN 100MG-500MG EACH CYCLE, CYCLICAL, INTRAVENOUS; (CYCLICAL) INTRAVENOUS; INTRAVENOUS
     Route: 042
     Dates: start: 20070316, end: 20070404
  10. METHYLPREDNISOLONE [Suspect]
     Indication: SYSTEMIC LUPUS ERYTHEMATOSUS
     Dosage: BETWEEN 100MG-500MG EACH CYCLE, CYCLICAL, INTRAVENOUS; (CYCLICAL) INTRAVENOUS; INTRAVENOUS
     Route: 042
     Dates: start: 20070316, end: 20070404
  11. METHYLPREDNISOLONE [Suspect]
     Indication: OFF LABEL USE
     Dosage: BETWEEN 100MG-500MG EACH CYCLE, CYCLICAL, INTRAVENOUS; (CYCLICAL) INTRAVENOUS; INTRAVENOUS
     Route: 042
     Dates: start: 20071106, end: 20071219
  12. METHYLPREDNISOLONE [Suspect]
     Indication: SYSTEMIC LUPUS ERYTHEMATOSUS
     Dosage: BETWEEN 100MG-500MG EACH CYCLE, CYCLICAL, INTRAVENOUS; (CYCLICAL) INTRAVENOUS; INTRAVENOUS
     Route: 042
     Dates: start: 20071106, end: 20071219
  13. CYCLOPHOSPHAMIDE [Suspect]
     Indication: SYSTEMIC LUPUS ERYTHEMATOSUS
     Dosage: 750 MG,
     Dates: start: 20030729, end: 20030812
  14. CYCLOPHOSPHAMIDE [Suspect]
     Indication: SYSTEMIC LUPUS ERYTHEMATOSUS
     Dosage: 750 MG,
     Dates: start: 20040624, end: 20040718
  15. (RITUXIMAB) [Suspect]
     Indication: SYSTEMIC LUPUS ERYTHEMATOSUS
     Dosage: MG, 750,; MG ( 1000 )
     Dates: start: 20030729, end: 20030812
  16. (RITUXIMAB) [Suspect]
     Indication: SYSTEMIC LUPUS ERYTHEMATOSUS
     Dosage: MG, 750,; MG ( 1000 )
     Dates: start: 20040624, end: 20040718
  17. (RITUXIMAB) [Suspect]
     Indication: SYSTEMIC LUPUS ERYTHEMATOSUS
     Dosage: MG, 750,; MG ( 1000 )
     Dates: start: 20050412, end: 20050426
  18. (RITUXIMAB) [Suspect]
     Indication: SYSTEMIC LUPUS ERYTHEMATOSUS
     Dosage: MG, 750,; MG ( 1000 )
     Dates: start: 20051010, end: 20051026
  19. (RITUXIMAB) [Suspect]
     Indication: SYSTEMIC LUPUS ERYTHEMATOSUS
     Dosage: MG, 750,; MG ( 1000 )
     Dates: start: 20070316, end: 20070404
  20. (RITUXIMAB) [Suspect]
     Indication: SYSTEMIC LUPUS ERYTHEMATOSUS
     Dosage: MG, 750,; MG ( 1000 )
     Dates: start: 20071106, end: 20071219
  21. ASCORBIC ACID [Concomitant]
  22. BACLOFEN [Concomitant]
  23. (CALCICHEW D3) [Concomitant]
  24. CITALOPRAM HYDROBROMIDE [Concomitant]
  25. (DIAZEPAM) [Concomitant]
  26. FENTANYL [Concomitant]
  27. (FERROUS SULPHATE /00023503/) [Concomitant]
  28. (FRUSEMIDE /00032601/) [Concomitant]
  29. (GABAPENTIN) [Concomitant]
  30. (HYDROXYCHLOROQUINE) [Concomitant]
  31. LANSOPRAZOLE [Concomitant]
  32. PREDNISOLONE [Concomitant]
  33. (TRAMADOL) [Concomitant]
  34. (VITAMIN B COMPLEX /00003501/) [Concomitant]
  35. (WARFARIN) [Concomitant]

REACTIONS (5)
  - BLOOD IMMUNOGLOBULIN M DECREASED [None]
  - BURSITIS INFECTIVE STAPHYLOCOCCAL [None]
  - INFECTED SKIN ULCER [None]
  - KLEBSIELLA INFECTION [None]
  - STAPHYLOCOCCAL INFECTION [None]
